FAERS Safety Report 20210779 (Version 3)
Quarter: 2022Q1

REPORT INFORMATION
  Report Type: Report from Study
  Country: CA (occurrence: CA)
  Receive Date: 20211221
  Receipt Date: 20220129
  Transmission Date: 20220423
  Serious: Yes (Other)
  Sender: FDA-Public Use
  Company Number: CA-NOVARTISPH-NVSC2021CA157561

PATIENT
  Sex: Female

DRUGS (7)
  1. SANDOSTATIN LAR DEPOT [Suspect]
     Active Substance: OCTREOTIDE ACETATE
     Indication: Carcinoid tumour
     Dosage: 20 MG
     Route: 030
     Dates: start: 20210611
  2. SANDOSTATIN LAR DEPOT [Suspect]
     Active Substance: OCTREOTIDE ACETATE
     Dosage: 40 MG, Q3W
     Route: 030
     Dates: start: 20210611
  3. SANDOSTATIN LAR DEPOT [Suspect]
     Active Substance: OCTREOTIDE ACETATE
     Dosage: 60 MG, Q3W
     Route: 030
     Dates: start: 202112
  4. SANDOSTATIN LAR DEPOT [Suspect]
     Active Substance: OCTREOTIDE ACETATE
     Dosage: 40 MG, Q3W
     Route: 030
     Dates: start: 202201
  5. FUROSEMIDE [Suspect]
     Active Substance: FUROSEMIDE
     Indication: Product used for unknown indication
     Dosage: UNK
     Route: 065
     Dates: start: 20210609
  6. LANREOTIDE ACETATE [Concomitant]
     Active Substance: LANREOTIDE ACETATE
     Indication: Carcinoid tumour
     Dosage: UNK
     Route: 065
     Dates: start: 2021, end: 20210407
  7. OCTREOTIDE [Concomitant]
     Active Substance: OCTREOTIDE
     Indication: Product used for unknown indication
     Dosage: 1 DOSAGE FORM, BID
     Route: 058
     Dates: start: 20210508

REACTIONS (13)
  - Tricuspid valve disease [Unknown]
  - Dyspnoea [Unknown]
  - Oedema peripheral [Unknown]
  - Dyspnoea exertional [Unknown]
  - Oedema [Unknown]
  - Mood swings [Unknown]
  - Blood pressure increased [Unknown]
  - Swelling [Unknown]
  - Abdominal pain [Unknown]
  - Decreased appetite [Unknown]
  - Dizziness [Unknown]
  - Nausea [Unknown]
  - Inappropriate schedule of product administration [Unknown]

NARRATIVE: CASE EVENT DATE: 20210101
